FAERS Safety Report 5402045-1 (Version None)
Quarter: 2007Q3

REPORT INFORMATION
  Report Type: 
  Country: None (occurrence: None)
  Receive Date: 20070727
  Receipt Date: 20070723
  Transmission Date: 20080115
  Serious: Yes (Hospitalization)
  Sender: FDA-Public Use
  Company Number: S07-USA-03191-01

PATIENT
  Age: 42 Year
  Sex: Female

DRUGS (4)
  1. CAMPRAL [Suspect]
     Indication: ALCOHOLISM
     Dosage: 666 MG TID PO
     Route: 048
     Dates: start: 20070201, end: 20070101
  2. CAMPRAL [Suspect]
     Indication: ALCOHOLISM
     Dosage: 666 MG TID PO
     Route: 048
     Dates: start: 20070113, end: 20070129
  3. ALCOHOL [Suspect]
  4. CHOLESTEROL MEDICATION (NOS) [Concomitant]

REACTIONS (12)
  - AGGRESSION [None]
  - AGITATION [None]
  - AMMONIA INCREASED [None]
  - AMNESIA [None]
  - BELLIGERENCE [None]
  - CONFUSIONAL STATE [None]
  - DISORIENTATION [None]
  - IMPRISONMENT [None]
  - PHYSICAL ASSAULT [None]
  - PYREXIA [None]
  - SOMNOLENCE [None]
  - TREATMENT NONCOMPLIANCE [None]
